FAERS Safety Report 5901652-7 (Version None)
Quarter: 2008Q3

REPORT INFORMATION
  Report Type: 
  Country: None (occurrence: None)
  Receive Date: 20080929
  Receipt Date: 20080922
  Transmission Date: 20090109
  Serious: Yes (Death)
  Sender: FDA-Public Use
  Company Number: JP-MERCK-0809USA04245

PATIENT
  Age: 65 Year
  Sex: Male

DRUGS (2)
  1. PEPCID [Suspect]
     Route: 051
     Dates: start: 20070601, end: 20070601
  2. [THERAPY UNSPECIFIED] [Suspect]
     Route: 065

REACTIONS (1)
  - AGRANULOCYTOSIS [None]
